FAERS Safety Report 8298262-6 (Version None)
Quarter: 2012Q2

REPORT INFORMATION
  Report Type: 
  Country: None (occurrence: None)
  Receive Date: 20120419
  Receipt Date: 20120214
  Transmission Date: 20120825
  Serious: No
  Sender: FDA-Public Use
  Company Number: US-BRISTOL-MYERS SQUIBB COMPANY-16385965

PATIENT
  Age: 47 Year
  Sex: Male
  Weight: 118 kg

DRUGS (12)
  1. IBUPROFEN (ADVIL) [Concomitant]
     Indication: PAIN
     Dosage: TABS,Q8H PRN
     Route: 048
  2. NAPROXEN SODIUM [Concomitant]
     Dosage: TAB, PRN
     Route: 048
  3. PLAVIX [Concomitant]
     Route: 048
  4. SIMVASTATIN [Concomitant]
     Dosage: TAB
     Route: 048
  5. YERVOY [Suspect]
     Indication: MALIGNANT MELANOMA
     Dosage: THERAPY ON 28DEC11,18JAN12,4TH DOSE ON 08FEB12
     Route: 042
     Dates: start: 20111207
  6. METOPROLOL SUCCINATE [Concomitant]
     Dosage: SUSTAINED RELEASE 24HR TAKE 1 PO DAILY
     Route: 048
  7. ASCORBIC ACID [Concomitant]
     Dosage: 1DF:1PACKET
     Route: 048
  8. NITROGLYCERIN [Concomitant]
     Route: 048
  9. PREDNISONE TAB [Concomitant]
     Dosage: TAB 2 PO AS DIRECTED
     Route: 048
  10. VITAMIN D2 [Concomitant]
     Dosage: 1DF=50000 UNIT;CAP TAKEN 1 PO Q7D
     Route: 048
  11. ASPIRIN [Concomitant]
     Dosage: ADULT LOW DOSE,TABS
     Route: 048
  12. LISINOPRIL AND HYDROCHLOROTHIAZIDE [Concomitant]
     Dosage: 1DF:10-12.5MG
     Route: 048

REACTIONS (2)
  - HEADACHE [None]
  - PRURITUS [None]
